FAERS Safety Report 8815274 (Version 1)
Quarter: 2012Q4

REPORT INFORMATION
  Report Type: 
  Country: BR (occurrence: BR)
  Receive Date: 20120928
  Receipt Date: 20120928
  Transmission Date: 20130627
  Serious: Yes (Death, Life-Threatening, Hospitalization, Disabling)
  Sender: FDA-Public Use
  Company Number: BR-B.I. PHARMACEUTICALS,INC./RIDGEFIELD-2012-BR-01089BR

PATIENT
  Age: 87 Year
  Sex: Male
  Weight: 50 kg

DRUGS (9)
  1. SECOTEX [Suspect]
     Indication: BENIGN PROSTATIC HYPERPLASIA
     Dosage: 0.4 mg
     Route: 048
     Dates: start: 2007, end: 20120916
  2. SUSTRATE [Concomitant]
     Indication: CARDIAC DISORDER
     Dates: start: 2000, end: 20120904
  3. GLIMEPIRIDA [Concomitant]
     Indication: TYPE 2 DIABETES MELLITUS
     Dates: start: 2000, end: 20120904
  4. MEMANTINA [Concomitant]
     Indication: VASCULAR DEMENTIA
     Dates: start: 2008, end: 20120904
  5. SELEGILINA [Concomitant]
     Indication: PARKINSON^S DISEASE
     Dates: start: 2002, end: 20120904
  6. GINKGO BILOBA [Concomitant]
     Indication: POOR PERIPHERAL CIRCULATION
     Dates: start: 2000, end: 20120904
  7. CRESTOR [Concomitant]
     Indication: BLOOD CHOLESTEROL INCREASED
     Dates: start: 201208, end: 20120904
  8. DAFLON [Concomitant]
     Dates: start: 201208, end: 20120904
  9. VASOGARD [Concomitant]
     Dates: start: 201208, end: 20120904

REACTIONS (5)
  - Pneumonia aspiration [Fatal]
  - Septic shock [Fatal]
  - Cardiac arrest [Not Recovered/Not Resolved]
  - Cerebrovascular accident [Not Recovered/Not Resolved]
  - Urinary tract infection [Not Recovered/Not Resolved]
